FAERS Safety Report 10990398 (Version 1)
Quarter: 2015Q2

REPORT INFORMATION
  Report Type: Spontaneous
  Country: US (occurrence: US)
  Receive Date: 20150406
  Receipt Date: 20150406
  Transmission Date: 20150821
  Serious: Yes (Hospitalization, Other)
  Sender: FDA-Public Use
  Company Number: US-AMGEN-USASP2015031503

PATIENT
  Age: 53 Year
  Sex: Female

DRUGS (5)
  1. ENBREL [Suspect]
     Active Substance: ETANERCEPT
     Indication: COLITIS ULCERATIVE
     Dosage: 50 MG, QWK
     Route: 065
     Dates: start: 201303
  2. ENBREL [Suspect]
     Active Substance: ETANERCEPT
     Indication: ARTHROPATHY
  3. SULFASALAZINE. [Concomitant]
     Active Substance: SULFASALAZINE
     Dosage: 500 MG, 3 TABS TWICE A DAY
     Route: 048
     Dates: start: 2011
  4. ENBREL [Suspect]
     Active Substance: ETANERCEPT
     Indication: INTERVERTEBRAL DISC DEGENERATION
  5. ENBREL [Suspect]
     Active Substance: ETANERCEPT
     Indication: SCIATICA

REACTIONS (7)
  - Disability [Not Recovered/Not Resolved]
  - Nerve injury [Not Recovered/Not Resolved]
  - Pain [Not Recovered/Not Resolved]
  - Intervertebral disc operation [Recovered/Resolved]
  - Spinal fusion surgery [Recovered/Resolved]
  - Peroneal nerve palsy [Not Recovered/Not Resolved]
  - Off label use [Not Recovered/Not Resolved]

NARRATIVE: CASE EVENT DATE: 20131104
